FAERS Safety Report 11673486 (Version 7)
Quarter: 2016Q1

REPORT INFORMATION
  Report Type: Report from Study
  Country: CA (occurrence: CA)
  Receive Date: 20151028
  Receipt Date: 20160218
  Transmission Date: 20160525
  Serious: Yes (Death, Hospitalization, Other)
  Sender: FDA-Public Use
  Company Number: PHHY2015CA135470

PATIENT
  Age: 69 Year
  Sex: Female

DRUGS (3)
  1. SANDOSTATIN LAR DEPOT [Suspect]
     Active Substance: OCTREOTIDE ACETATE
     Dosage: 60 MG, EVERY 3 WEEKS
     Route: 030
     Dates: end: 20160128
  2. SANDOSTATIN LAR DEPOT [Suspect]
     Active Substance: OCTREOTIDE ACETATE
     Indication: CARCINOID TUMOUR OF THE SMALL BOWEL
     Dosage: 30 MG, EVERY 4 WEEKS (QMO)
     Route: 030
     Dates: start: 20150915
  3. SANDOSTATIN LAR DEPOT [Suspect]
     Active Substance: OCTREOTIDE ACETATE
     Dosage: 60 MG, QMO (EVERY 4 WEEKS)
     Route: 030

REACTIONS (14)
  - Death [Fatal]
  - Malaise [Unknown]
  - Condition aggravated [Unknown]
  - Blood pressure increased [Unknown]
  - Needle issue [Unknown]
  - Inappropriate schedule of drug administration [Unknown]
  - Respiratory failure [Unknown]
  - Ventricular septal defect [Unknown]
  - Nerve compression [Unknown]
  - Renal failure [Unknown]
  - Tumour compression [Unknown]
  - Diarrhoea [Recovering/Resolving]
  - Respiratory rate increased [Unknown]
  - Dyspnoea [Unknown]

NARRATIVE: CASE EVENT DATE: 20151031
